FAERS Safety Report 22367043 (Version 1)
Quarter: 2023Q2

REPORT INFORMATION
  Report Type: Spontaneous
  Country: US (occurrence: None)
  Receive Date: 20230525
  Receipt Date: 20230525
  Transmission Date: 20230721
  Serious: Yes (Death)
  Sender: FDA-Public Use
  Company Number: None

PATIENT
  Age: 63 Year
  Sex: Male
  Weight: 68.85 kg

DRUGS (10)
  1. LENALIDOMIDE [Suspect]
     Active Substance: LENALIDOMIDE
     Indication: Plasma cell myeloma
     Dosage: FREQUENCY : DAILY;?
     Route: 048
     Dates: start: 20230320, end: 20230512
  2. ACYCLOVIR [Concomitant]
     Active Substance: ACYCLOVIR
  3. dexamethason 4mg [Concomitant]
  4. dofetilide 125mc [Concomitant]
  5. ELIQUIS [Concomitant]
     Active Substance: APIXABAN
  6. FUROSEMIDE [Concomitant]
     Active Substance: FUROSEMIDE
  7. LOSARTAN [Concomitant]
     Active Substance: LOSARTAN
  8. METOPROLOL [Concomitant]
     Active Substance: METOPROLOL
  9. PANTOPRAZOLE SODIUM [Concomitant]
     Active Substance: PANTOPRAZOLE SODIUM
  10. SPIRONOLACTONE [Concomitant]
     Active Substance: SPIRONOLACTONE

REACTIONS (1)
  - Death [None]

NARRATIVE: CASE EVENT DATE: 20230512
